FAERS Safety Report 10676441 (Version 1)
Quarter: 2014Q4

REPORT INFORMATION
  Report Type: Spontaneous
  Country: US (occurrence: None)
  Receive Date: 20141223
  Receipt Date: 20141223
  Transmission Date: 20150529
  Serious: Yes (Other)
  Sender: FDA-Public Use
  Company Number: None

PATIENT
  Age: 40 Year
  Sex: Male

DRUGS (1)
  1. TECFIDERA [Suspect]
     Active Substance: DIMETHYL FUMARATE
     Indication: MULTIPLE SCLEROSIS
     Dosage: 1 CAPSULE, BID, ORAL
     Route: 048
     Dates: start: 20141120, end: 20141220

REACTIONS (3)
  - Flatulence [None]
  - Abdominal distension [None]
  - Abdominal pain upper [None]

NARRATIVE: CASE EVENT DATE: 20141218
